FAERS Safety Report 17237883 (Version 1)
Quarter: 2020Q1

REPORT INFORMATION
  Report Type: Spontaneous
  Country: US (occurrence: US)
  Receive Date: 20200106
  Receipt Date: 20200106
  Transmission Date: 20200409
  Serious: Yes (Other)
  Sender: FDA-Public Use
  Company Number: US-PFIZER INC-2019559877

PATIENT
  Age: 95 Year
  Sex: Female
  Weight: 75.52 kg

DRUGS (4)
  1. VITAMIN C + ROSEHIP [Concomitant]
     Dosage: 4000 IU, UNK
     Dates: start: 20191226
  2. ROBITUSSIN COUGH AND CHEST CONGESTION DM [Suspect]
     Active Substance: DEXTROMETHORPHAN HYDROBROMIDE\GUAIFENESIN
     Indication: BRONCHITIS
     Dosage: 20 ML, UNK (EVERY 4 HOURS)
     Route: 048
     Dates: start: 20191224
  3. ROBITUSSIN COUGH AND CHEST CONGESTION SUGAR FREE DM [Suspect]
     Active Substance: DEXTROMETHORPHAN HYDROBROMIDE\GUAIFENESIN
  4. VITAMIN C + ROSEHIP [Concomitant]
     Dosage: 2000 IU, UNK
     Dates: start: 20191225

REACTIONS (5)
  - Productive cough [Unknown]
  - Oropharyngeal pain [Unknown]
  - Product label confusion [Unknown]
  - Pneumonia [Unknown]
  - Wrong product administered [Unknown]

NARRATIVE: CASE EVENT DATE: 20191224
